FAERS Safety Report 10233143 (Version 1)
Quarter: 2014Q2

REPORT INFORMATION
  Report Type: Spontaneous
  Country: US (occurrence: None)
  Receive Date: 20140611
  Receipt Date: 20140611
  Transmission Date: 20141212
  Serious: Yes (Hospitalization)
  Sender: FDA-Public Use
  Company Number: None

PATIENT
  Age: 52 Year
  Sex: Female
  Weight: 62 kg

DRUGS (1)
  1. CISPLATIN [Suspect]

REACTIONS (5)
  - Small intestinal obstruction [None]
  - Enteritis [None]
  - Gastroenteritis radiation [None]
  - Diarrhoea [None]
  - Clostridium difficile infection [None]
